FAERS Safety Report 8611210-1 (Version None)
Quarter: 2012Q3

REPORT INFORMATION
  Report Type: 
  Country: None (occurrence: None)
  Receive Date: 20120822
  Receipt Date: 20120813
  Transmission Date: 20120928
  Serious: Yes (Other)
  Sender: FDA-Public Use
  Company Number: BR-JNJFOC-20120810535

PATIENT
  Sex: Female

DRUGS (1)
  1. XARELTO [Suspect]
     Indication: PRODUCT USED FOR UNKNOWN INDICATION
     Route: 048
     Dates: start: 20120808

REACTIONS (6)
  - VOMITING [None]
  - OEDEMA PERIPHERAL [None]
  - MALAISE [None]
  - HYPOPNOEA [None]
  - ABDOMINAL PAIN [None]
  - ASTHENIA [None]
